FAERS Safety Report 8016479-2 (Version None)
Quarter: 2011Q4

REPORT INFORMATION
  Report Type: 
  Country: None (occurrence: None)
  Receive Date: 20111230
  Receipt Date: 20111220
  Transmission Date: 20120403
  Serious: Yes (Other)
  Sender: FDA-Public Use
  Company Number: US-ABBOTT-11P-163-0884891-00

PATIENT
  Sex: Female
  Weight: 59.02 kg

DRUGS (3)
  1. HUMIRA [Suspect]
     Indication: CROHN'S DISEASE
     Dates: start: 20080101
  2. LISINOPRIL [Concomitant]
     Indication: HYPERTENSION
  3. METOPROLOL [Suspect]
     Indication: SUPRAVENTRICULAR TACHYCARDIA
     Dates: start: 20111123

REACTIONS (5)
  - BREAST CANCER [None]
  - DECREASED APPETITE [None]
  - BREAST CALCIFICATIONS [None]
  - SUPRAVENTRICULAR TACHYCARDIA [None]
  - FATIGUE [None]
